FAERS Safety Report 25264404 (Version 1)
Quarter: 2025Q2

REPORT INFORMATION
  Report Type: Spontaneous
  Country: CN (occurrence: CN)
  Receive Date: 20250502
  Receipt Date: 20250502
  Transmission Date: 20250716
  Serious: Yes (Other)
  Sender: MYLAN
  Company Number: CN-MYLANLABS-2025M1036686

PATIENT
  Age: 62 Year
  Sex: Female
  Weight: 56 kg

DRUGS (12)
  1. CELEBREX [Suspect]
     Active Substance: CELECOXIB
     Indication: Arthropathy
     Dosage: 0.2 GRAM, BID
     Dates: start: 20250416, end: 20250421
  2. CELEBREX [Suspect]
     Active Substance: CELECOXIB
     Dosage: 0.2 GRAM, BID
     Route: 048
     Dates: start: 20250416, end: 20250421
  3. CELEBREX [Suspect]
     Active Substance: CELECOXIB
     Dosage: 0.2 GRAM, BID
     Route: 048
     Dates: start: 20250416, end: 20250421
  4. CELEBREX [Suspect]
     Active Substance: CELECOXIB
     Dosage: 0.2 GRAM, BID
     Dates: start: 20250416, end: 20250421
  5. GLUCOSAMINE SULFATE [Concomitant]
     Active Substance: GLUCOSAMINE SULFATE
     Indication: Arthropathy
     Dosage: 2 DOSAGE FORM, TID
     Dates: start: 20250411, end: 20250420
  6. GLUCOSAMINE SULFATE [Concomitant]
     Active Substance: GLUCOSAMINE SULFATE
     Dosage: 2 DOSAGE FORM, TID
     Route: 048
     Dates: start: 20250411, end: 20250420
  7. GLUCOSAMINE SULFATE [Concomitant]
     Active Substance: GLUCOSAMINE SULFATE
     Dosage: 2 DOSAGE FORM, TID
     Route: 048
     Dates: start: 20250411, end: 20250420
  8. GLUCOSAMINE SULFATE [Concomitant]
     Active Substance: GLUCOSAMINE SULFATE
     Dosage: 2 DOSAGE FORM, TID
     Dates: start: 20250411, end: 20250420
  9. SODIUM HYALURONATE [Concomitant]
     Active Substance: HYALURONATE SODIUM
  10. SODIUM HYALURONATE [Concomitant]
     Active Substance: HYALURONATE SODIUM
     Route: 065
  11. SODIUM HYALURONATE [Concomitant]
     Active Substance: HYALURONATE SODIUM
     Route: 065
  12. SODIUM HYALURONATE [Concomitant]
     Active Substance: HYALURONATE SODIUM

REACTIONS (2)
  - Delirium [Recovering/Resolving]
  - Anxiety [Recovering/Resolving]

NARRATIVE: CASE EVENT DATE: 20250417
